FAERS Safety Report 7772545-8 (Version None)
Quarter: 2011Q3

REPORT INFORMATION
  Report Type: 
  Country: None (occurrence: None)
  Receive Date: 20110922
  Receipt Date: 20110316
  Transmission Date: 20111222
  Serious: No
  Sender: FDA-Public Use
  Company Number: US-ASTRAZENECA-2011SE14770

PATIENT
  Age: 41 Year
  Sex: Male

DRUGS (5)
  1. CLONIDINE [Concomitant]
  2. DEPAKOTE [Concomitant]
  3. SEROQUEL [Suspect]
     Indication: BIPOLAR DISORDER
     Route: 048
     Dates: start: 20110311
  4. BUSPIRONE HCL [Concomitant]
  5. CHLORDIAZEPOXIDE [Concomitant]

REACTIONS (2)
  - ANGER [None]
  - HALLUCINATIONS, MIXED [None]
